FAERS Safety Report 23121790 (Version 2)
Quarter: 2023Q4

REPORT INFORMATION
  Report Type: Spontaneous
  Country: US (occurrence: US)
  Receive Date: 20231030
  Receipt Date: 20231101
  Transmission Date: 20240109
  Serious: No
  Sender: FDA-Public Use
  Company Number: US-SA-SAC20231024000347

PATIENT
  Age: 6 Year
  Sex: Female
  Weight: 31 kg

DRUGS (1)
  1. DUPIXENT [Suspect]
     Active Substance: DUPILUMAB
     Indication: Dermatitis atopic
     Dosage: 300 MG, Q4W
     Route: 058
     Dates: end: 20231008

REACTIONS (3)
  - Eczema [Unknown]
  - Erythema [Unknown]
  - Incorrect dose administered [Unknown]
